FAERS Safety Report 21328730 (Version 3)
Quarter: 2022Q4

REPORT INFORMATION
  Report Type: Report from Study
  Country: GB (occurrence: GB)
  Receive Date: 20220913
  Receipt Date: 20221010
  Transmission Date: 20230113
  Serious: Yes (Hospitalization, Other)
  Sender: FDA-Public Use
  Company Number: GB-ROCHE-2083642

PATIENT
  Age: 65 Year
  Sex: Female

DRUGS (40)
  1. DOCETAXEL [Suspect]
     Active Substance: DOCETAXEL
     Indication: Breast cancer metastatic
     Dosage: 108 MILLIGRAM, 3XW
     Route: 042
     Dates: start: 20170620, end: 20170801
  2. DOCETAXEL [Suspect]
     Active Substance: DOCETAXEL
     Indication: HER2 positive breast cancer
     Dosage: 88 MILLIGRAM, 3XW
     Route: 042
     Dates: start: 20170822, end: 20171003
  3. TRASTUZUMAB [Suspect]
     Active Substance: TRASTUZUMAB
     Indication: Breast cancer metastatic
     Dosage: 315 MILLIGRAM, 3XW
     Route: 042
     Dates: start: 20170711, end: 20170801
  4. TRASTUZUMAB [Suspect]
     Active Substance: TRASTUZUMAB
     Indication: HER2 positive breast cancer
     Dosage: 294 MILLIGRAM, 3XW
     Route: 042
     Dates: start: 20180910, end: 20181024
  5. TRASTUZUMAB [Suspect]
     Active Substance: TRASTUZUMAB
     Dosage: 283.5 MILLIGRAM
     Route: 042
     Dates: start: 20180709, end: 20180820
  6. TRASTUZUMAB [Suspect]
     Active Substance: TRASTUZUMAB
     Dosage: 283.5 MILLIGRAM
     Route: 042
     Dates: start: 20171003, end: 20180502
  7. TRASTUZUMAB [Suspect]
     Active Substance: TRASTUZUMAB
     Dosage: 388.5 MILLIGRAM
     Route: 042
     Dates: start: 20180618, end: 20180618
  8. TRASTUZUMAB [Suspect]
     Active Substance: TRASTUZUMAB
     Dosage: 420 MILLIGRAM
     Route: 042
     Dates: start: 20170719, end: 20170719
  9. TRASTUZUMAB [Suspect]
     Active Substance: TRASTUZUMAB
     Dosage: 294 MILLIGRAM
     Route: 042
     Dates: start: 20170822, end: 20170916
  10. CAPECITABINE [Suspect]
     Active Substance: CAPECITABINE
     Indication: Breast cancer metastatic
     Dosage: 1150 MILLIGRAM, QD (DAILY FOR 14 DAYS, 1 WEEK OFF)
     Route: 048
     Dates: start: 20211013, end: 20211208
  11. PERTUZUMAB [Suspect]
     Active Substance: PERTUZUMAB
     Indication: Breast cancer metastatic
     Dosage: 420 MILLIGRAM, 3XW
     Route: 042
     Dates: start: 20170711, end: 20180502
  12. PERTUZUMAB [Suspect]
     Active Substance: PERTUZUMAB
     Indication: HER2 positive breast cancer
     Dosage: 420 MILLIGRAM, 3XW
     Route: 042
     Dates: start: 20170619, end: 20170619
  13. PERTUZUMAB [Suspect]
     Active Substance: PERTUZUMAB
     Dosage: 840 MILLIGRAM, 3XW
     Route: 042
     Dates: start: 20180618, end: 20180618
  14. PERTUZUMAB [Suspect]
     Active Substance: PERTUZUMAB
     Dosage: 420 MILLIGRAM, 3XW
     Route: 042
     Dates: start: 20180709
  15. PERTUZUMAB [Suspect]
     Active Substance: PERTUZUMAB
     Dosage: 294 MILLIGRAM, 3X
     Route: 042
     Dates: start: 20180910, end: 20181024
  16. PERTUZUMAB [Suspect]
     Active Substance: PERTUZUMAB
     Dosage: 840 MILLIGRAM, 3XW
     Route: 042
     Dates: start: 20170619, end: 20170619
  17. PERTUZUMAB [Suspect]
     Active Substance: PERTUZUMAB
     Dosage: 420 MILLIGRAM, 3XW
     Route: 042
     Dates: start: 20180709, end: 20181024
  18. ADO-TRASTUZUMAB EMTANSINE [Suspect]
     Active Substance: ADO-TRASTUZUMAB EMTANSINE
     Indication: Breast cancer metastatic
     Dosage: 200 MILLIGRAM, 3XW
     Route: 042
     Dates: start: 20181122, end: 20201217
  19. ADO-TRASTUZUMAB EMTANSINE [Suspect]
     Active Substance: ADO-TRASTUZUMAB EMTANSINE
     Indication: HER2 positive breast cancer
     Dosage: 180 MILLIGRAM, 3XW
     Route: 042
     Dates: start: 20200225, end: 20200225
  20. ADO-TRASTUZUMAB EMTANSINE [Suspect]
     Active Substance: ADO-TRASTUZUMAB EMTANSINE
     Dosage: 200 MILLIGRAM, 3XW
     Route: 042
     Dates: start: 20200514, end: 20201126
  21. ADO-TRASTUZUMAB EMTANSINE [Suspect]
     Active Substance: ADO-TRASTUZUMAB EMTANSINE
     Dosage: 180 MILLIGRAM, 3XW
     Route: 042
     Dates: start: 20201217, end: 20210827
  22. XGEVA [Suspect]
     Active Substance: DENOSUMAB
     Indication: Product used for unknown indication
     Dosage: UNK, MONTHLY
     Route: 058
  23. NERATINIB [Suspect]
     Active Substance: NERATINIB
     Indication: Breast cancer metastatic
     Dosage: 240 MILLIGRAM, QD
     Route: 048
     Dates: start: 20211013, end: 20211220
  24. NERATINIB [Suspect]
     Active Substance: NERATINIB
     Dosage: 240 MILLIGRAM, QD
     Route: 048
  25. FILGRASTIM [Concomitant]
     Active Substance: FILGRASTIM
     Indication: Product used for unknown indication
     Dosage: 10 MILLIGRAM, PRN
     Route: 048
     Dates: start: 20170620
  26. FILGRASTIM [Concomitant]
     Active Substance: FILGRASTIM
     Dosage: 300 MICROGRAM
     Route: 058
     Dates: start: 20170620
  27. DEXAMETHASONE [Concomitant]
     Active Substance: DEXAMETHASONE
     Dosage: PRN (AS NEEDED)
     Route: 048
     Dates: start: 20170620
  28. LANSOPRAZOLE [Concomitant]
     Active Substance: LANSOPRAZOLE
     Dosage: PRN (AS NEEDED)
     Route: 048
     Dates: start: 20170705
  29. LANSOPRAZOLE [Concomitant]
     Active Substance: LANSOPRAZOLE
     Dosage: 840 MILLIGRAM, 3XW
     Route: 042
     Dates: start: 20180618, end: 20180618
  30. LOPERAMIDE [Concomitant]
     Active Substance: LOPERAMIDE
     Dosage: 16 MILLIGRAM, PRN PRN (AS NEEDED)
     Route: 048
     Dates: start: 20170705
  31. METOCLOPRAMIDE [Concomitant]
     Active Substance: METOCLOPRAMIDE
     Dosage: PRN (AS NEEDED)
     Route: 048
     Dates: start: 20170620
  32. ONDANSETRON [Concomitant]
     Active Substance: ONDANSETRON
     Dosage: 8 MILLIGRAM, PRN PRN (AS NEEDED)
     Route: 048
     Dates: start: 20170620
  33. MORPHINE SULFATE [Concomitant]
     Active Substance: MORPHINE SULFATE
     Dosage: UNK UNK, PRN AS NECESSARY
     Route: 048
  34. ACETAMINOPHEN [Concomitant]
     Active Substance: ACETAMINOPHEN
     Dosage: UNK UNK, PRN AS NECESSARY
     Route: 048
  35. SIMVASTATIN [Concomitant]
     Active Substance: SIMVASTATIN
     Dosage: 8 MILLIGRAM, PRN
     Route: 065
  36. SIMVASTATIN [Concomitant]
     Active Substance: SIMVASTATIN
     Dosage: UNK
     Route: 065
  37. MORPHINE SULFATE [Concomitant]
     Active Substance: MORPHINE SULFATE
     Dosage: 10 MILLIGRAM
     Route: 048
  38. DENOSUMAB [Concomitant]
     Active Substance: DENOSUMAB
     Dosage: 1 DOSAGE FORM, MONTHLY
     Route: 058
  39. LEVETIRACETAM [Concomitant]
     Active Substance: LEVETIRACETAM
     Dosage: 250 MILLIGRAM
     Route: 048
     Dates: start: 20201223, end: 20211228
  40. LEVETIRACETAM [Concomitant]
     Active Substance: LEVETIRACETAM
     Dosage: 1500 MILLIGRAM
     Route: 048
     Dates: start: 20211228

REACTIONS (6)
  - Ejection fraction decreased [Recovered/Resolved]
  - Lacrimation increased [Recovered/Resolved]
  - Diarrhoea [Recovered/Resolved]
  - Cough [Recovered/Resolved]
  - Abdominal distension [Recovered/Resolved]
  - Off label use [Unknown]

NARRATIVE: CASE EVENT DATE: 20170801
